FAERS Safety Report 4629520-1 (Version None)
Quarter: 2005Q2

REPORT INFORMATION
  Report Type: 
  Country: None (occurrence: None)
  Receive Date: 20050405
  Receipt Date: 20050322
  Transmission Date: 20051028
  Serious: No
  Sender: FDA-Public Use
  Company Number: US-2004-035310

PATIENT
  Age: 48 Year
  Sex: Female

DRUGS (7)
  1. BETASERON [Suspect]
     Indication: MULTIPLE SCLEROSIS
     Dosage: 2 MIU, EVERY 2D, SUBCUTANEOUS
     Route: 058
     Dates: start: 20041007, end: 20041102
  2. EFEXOR /USA/ (VENLAFAXINE HYDROCHLORIDE) [Concomitant]
  3. BEXTRA [Concomitant]
  4. IBUPROFEN [Concomitant]
  5. DRAMAMINE [Concomitant]
  6. MAALOX /USA/ (ALUMINIUM HYDROXIDE GEL, MAGNESIUM HYDROXIDE) [Concomitant]
  7. LEXAPRO [Concomitant]

REACTIONS (2)
  - CHOLELITHIASIS [None]
  - TRANSAMINASES INCREASED [None]
